FAERS Safety Report 7047572-9 (Version None)
Quarter: 2010Q4

REPORT INFORMATION
  Report Type: 
  Country: None (occurrence: None)
  Receive Date: 20101015
  Receipt Date: 20101004
  Transmission Date: 20110411
  Serious: Yes (Other)
  Sender: FDA-Public Use
  Company Number: CA-ELI_LILLY_AND_COMPANY-CA201010000494

PATIENT
  Sex: Male
  Weight: 115.4 kg

DRUGS (6)
  1. ZYPREXA [Suspect]
     Dosage: 20 MG, DAILY (1/D)
  2. ZYPREXA [Suspect]
     Dosage: 10 MG, DAILY (1/D)
  3. ZYPREXA [Suspect]
     Dosage: 5 MG, DAILY (1/D)
  4. ZYBAN [Concomitant]
     Indication: SMOKING CESSATION THERAPY
  5. MULTI-VITAMIN [Concomitant]
  6. SELENIUM [Concomitant]

REACTIONS (7)
  - ARRHYTHMIA [None]
  - CARDIAC DISORDER [None]
  - ERECTILE DYSFUNCTION [None]
  - HYPERTRIGLYCERIDAEMIA [None]
  - TRIFASCICULAR BLOCK [None]
  - TYPE 2 DIABETES MELLITUS [None]
  - WEIGHT INCREASED [None]
